FAERS Safety Report 16541790 (Version 1)
Quarter: 2019Q3

REPORT INFORMATION
  Report Type: Spontaneous
  Country: US (occurrence: US)
  Receive Date: 20190708
  Receipt Date: 20190708
  Transmission Date: 20191004
  Serious: Yes (Life-Threatening, Hospitalization, Other)
  Sender: FDA-Public Use
  Company Number: US-MYLANLABS-2019M1062466

PATIENT
  Age: 32 Year
  Sex: Female

DRUGS (3)
  1. NIVOLUMAB [Suspect]
     Active Substance: NIVOLUMAB
     Indication: HEPATOCELLULAR CARCINOMA
     Route: 065
  2. DEXAMETHASONE. [Suspect]
     Active Substance: DEXAMETHASONE
     Indication: HEPATOCELLULAR CARCINOMA
     Dosage: FOR THREE DAYS
     Route: 065
  3. ROVALPITUZUMAB TESIRINE [Suspect]
     Active Substance: ROVALPITUZUMAB TESIRINE
     Indication: HEPATOCELLULAR CARCINOMA
     Route: 065

REACTIONS (1)
  - Hyperammonaemic encephalopathy [Recovering/Resolving]
